FAERS Safety Report 14933567 (Version 4)
Quarter: 2018Q3

REPORT INFORMATION
  Report Type: Spontaneous
  Country: JP (occurrence: JP)
  Receive Date: 20180524
  Receipt Date: 20180731
  Transmission Date: 20181010
  Serious: Yes (Hospitalization, Other)
  Sender: FDA-Public Use
  Company Number: JP-ASTELLAS-2018JP009146AA

PATIENT
  Age: 41 Year
  Sex: Female

DRUGS (5)
  1. CERTICAN [Concomitant]
     Active Substance: EVEROLIMUS
     Indication: HEART TRANSPLANT
     Route: 048
  2. GRACEPTOR [Suspect]
     Active Substance: TACROLIMUS
     Indication: HEART TRANSPLANT
     Route: 048
  3. CERTICAN [Concomitant]
     Active Substance: EVEROLIMUS
     Route: 048
  4. CELLCEPT [Concomitant]
     Active Substance: MYCOPHENOLATE MOFETIL\MYCOPHENOLATE MOFETIL HYDROCHLORIDE
     Route: 048
  5. CELLCEPT [Concomitant]
     Active Substance: MYCOPHENOLATE MOFETIL\MYCOPHENOLATE MOFETIL HYDROCHLORIDE
     Indication: HEART TRANSPLANT
     Dosage: UNK UNK, UNKNOWN FREQ.
     Route: 048

REACTIONS (3)
  - Gastrointestinal disorder [Unknown]
  - Decreased appetite [Unknown]
  - Invasive ductal breast carcinoma [Recovering/Resolving]
